FAERS Safety Report 8396225-3 (Version None)
Quarter: 2012Q2

REPORT INFORMATION
  Report Type: 
  Country: None (occurrence: None)
  Receive Date: 20120530
  Receipt Date: 20120523
  Transmission Date: 20120825
  Serious: Yes (Hospitalization, Other)
  Sender: FDA-Public Use
  Company Number: PHHY2012MX045429

PATIENT
  Age: 65 Year
  Sex: Male

DRUGS (7)
  1. ASPIRIN [Concomitant]
     Indication: ANGIOPATHY
     Dosage: 1 DF,  AT NIGHT
     Dates: start: 20111001
  2. LIPITOR [Concomitant]
     Dosage: 1 DF, DAILY
     Dates: start: 20111001
  3. OMEPRAZOLE [Concomitant]
     Indication: GASTRIC DISORDER
     Dosage: 20 MG, UNK
     Dates: start: 20110301
  4. CARVEDILOL [Concomitant]
     Dosage: 1 DF, DAILY
     Dates: start: 20111001
  5. PLAVIX [Concomitant]
     Dosage: 1 DF, DAILY
     Dates: start: 20111001
  6. GLUCOPHAGE [Concomitant]
     Indication: BLOOD GLUCOSE ABNORMAL
     Dosage: 1.5 DF, UNK
     Dates: start: 20120201
  7. DIOVAN HCT [Suspect]
     Indication: HYPERTENSION
     Dosage: 2 DF OF (80 MG VALS AND 12.5 MG HYDRO), DAILY
     Dates: start: 20110201

REACTIONS (6)
  - INFARCTION [None]
  - BLOOD CHOLESTEROL INCREASED [None]
  - BLOOD GLUCOSE INCREASED [None]
  - NECROSIS [None]
  - BLOOD TRIGLYCERIDES INCREASED [None]
  - DIARRHOEA [None]
